FAERS Safety Report 20871511 (Version 1)
Quarter: 2022Q2

REPORT INFORMATION
  Report Type: Spontaneous
  Country: US (occurrence: None)
  Receive Date: 20220524
  Receipt Date: 20220524
  Transmission Date: 20220721
  Serious: Yes (Life-Threatening, Hospitalization)
  Sender: FDA-Public Use
  Company Number: None

PATIENT
  Age: 55 Year
  Sex: Male
  Weight: 76.5 kg

DRUGS (5)
  1. ACETAMINOPHEN\HYDROCODONE [Suspect]
     Active Substance: ACETAMINOPHEN\HYDROCODONE
     Indication: Back pain
     Route: 048
  2. FENTANYL [Suspect]
     Active Substance: FENTANYL
  3. CLONAZEPAM [Concomitant]
     Active Substance: CLONAZEPAM
  4. ABILIFY [Concomitant]
     Active Substance: ARIPIPRAZOLE
  5. ATORVASTATIN [Concomitant]
     Active Substance: ATORVASTATIN

REACTIONS (4)
  - Loss of consciousness [None]
  - Respiratory arrest [None]
  - Pain [None]
  - Self-medication [None]

NARRATIVE: CASE EVENT DATE: 20210831
